FAERS Safety Report 14980915 (Version 2)
Quarter: 2018Q2

REPORT INFORMATION
  Report Type: Spontaneous
  Country: RU (occurrence: RU)
  Receive Date: 20180606
  Receipt Date: 20180621
  Transmission Date: 20180711
  Serious: Yes (Hospitalization)
  Sender: FDA-Public Use
  Company Number: PHHY2018RU012320

PATIENT
  Sex: Male

DRUGS (2)
  1. METHOTREXATE. [Suspect]
     Active Substance: METHOTREXATE
     Dosage: 15 MG/M2, UNK
     Route: 030
  2. METHOTREXATE. [Suspect]
     Active Substance: METHOTREXATE
     Indication: JUVENILE IDIOPATHIC ARTHRITIS
     Dosage: 10 MG (19 MG/M2 OF BODY SURFACE), QW
     Route: 030

REACTIONS (8)
  - Arthropathy [Recovering/Resolving]
  - Drug ineffective [Recovering/Resolving]
  - Pain [Recovering/Resolving]
  - Asthenia [Recovering/Resolving]
  - Pyrexia [Recovering/Resolving]
  - Inflammation [Recovering/Resolving]
  - Musculoskeletal stiffness [Recovering/Resolving]
  - Diarrhoea [Recovering/Resolving]
